FAERS Safety Report 22014033 (Version 5)
Quarter: 2023Q2

REPORT INFORMATION
  Report Type: Spontaneous
  Country: JP (occurrence: None)
  Receive Date: 20230221
  Receipt Date: 20230511
  Transmission Date: 20230722
  Serious: Yes (Other)
  Sender: FDA-Public Use
  Company Number: 2023A039636

PATIENT
  Age: 81 Year
  Sex: Male

DRUGS (20)
  1. ONDEXXYA [Suspect]
     Active Substance: ANDEXANET ALFA
     Indication: Haemorrhage
     Dosage: DOSE UNKNOWN880.0MG UNKNOWN
     Route: 042
     Dates: start: 20230201, end: 20230201
  2. ONDEXXYA [Suspect]
     Active Substance: ANDEXANET ALFA
     Indication: Cerebral haematoma
     Dosage: DOSE UNKNOWN880.0MG UNKNOWN
     Route: 042
     Dates: start: 20230201, end: 20230201
  3. EDOXABAN TOSYLATE [Concomitant]
     Active Substance: EDOXABAN TOSYLATE
     Indication: Atrial fibrillation
     Route: 048
     Dates: start: 20230210
  4. VIMPAT [Concomitant]
     Active Substance: LACOSAMIDE
     Indication: Brain contusion
     Route: 048
     Dates: start: 20230203
  5. BISOPROLOL [Concomitant]
     Active Substance: BISOPROLOL
     Indication: Atrial fibrillation
     Route: 048
  6. FEBUXOSTAT [Concomitant]
     Active Substance: FEBUXOSTAT
     Indication: Hyperuricaemia
     Route: 048
  7. MIYA-BM [Concomitant]
     Active Substance: CLOSTRIDIUM BUTYRICUM SPORES STRAIN M-55
     Indication: Diarrhoea
     Route: 048
  8. FLORINEF ACETATE [Concomitant]
     Active Substance: FLUDROCORTISONE ACETATE
     Indication: Hyponatraemia
     Route: 048
     Dates: start: 20230214
  9. HERBALS [Concomitant]
     Active Substance: HERBALS
     Indication: Subdural haematoma
     Route: 048
  10. HERBALS [Concomitant]
     Active Substance: HERBALS
     Indication: Subdural haematoma
     Route: 048
  11. HERBALS [Concomitant]
     Active Substance: HERBALS
     Indication: Apathy
     Route: 048
     Dates: start: 20230210
  12. HERBALS [Concomitant]
     Active Substance: HERBALS
     Indication: Apathy
     Route: 048
     Dates: start: 20230210
  13. OLOPATADINE [Concomitant]
     Active Substance: OLOPATADINE
     Route: 048
  14. OLOPATADINE [Concomitant]
     Active Substance: OLOPATADINE
     Route: 048
  15. AMLODIPINE [Concomitant]
     Active Substance: AMLODIPINE BESYLATE
     Indication: Hypertension
     Route: 048
  16. AMLODIPINE [Concomitant]
     Active Substance: AMLODIPINE BESYLATE
     Indication: Hypertension
     Route: 048
  17. VONOPRAZAN FUMARATE [Concomitant]
     Active Substance: VONOPRAZAN FUMARATE
     Route: 048
  18. VONOPRAZAN FUMARATE [Concomitant]
     Active Substance: VONOPRAZAN FUMARATE
     Route: 048
  19. ALINAMIN F [Concomitant]
     Active Substance: FURSULTIAMINE HYDROCHLORIDE
     Route: 048
  20. ALINAMIN F [Concomitant]
     Active Substance: FURSULTIAMINE HYDROCHLORIDE
     Route: 048

REACTIONS (1)
  - Cerebral infarction [Recovered/Resolved]

NARRATIVE: CASE EVENT DATE: 20230202
